FAERS Safety Report 5137996-9 (Version None)
Quarter: 2006Q4

REPORT INFORMATION
  Report Type: 
  Country: None (occurrence: None)
  Receive Date: 20061030
  Receipt Date: 20060328
  Transmission Date: 20070319
  Serious: No
  Sender: FDA-Public Use
  Company Number: US-GLAXOSMITHKLINE-A0599340A

PATIENT
  Age: 58 Year
  Sex: Male

DRUGS (4)
  1. ADVAIR HFA [Suspect]
     Indication: ASTHMA
     Dosage: 1PUFF TWICE PER DAY
     Route: 055
     Dates: start: 20060315
  2. RHINOCORT [Concomitant]
  3. UNKNOWN MEDICATION [Concomitant]
  4. NEXIUM [Concomitant]

REACTIONS (3)
  - COUGH [None]
  - DIZZINESS [None]
  - NAUSEA [None]
